FAERS Safety Report 18966280 (Version 1)
Quarter: 2021Q1

REPORT INFORMATION
  Report Type: Spontaneous
  Country: GB (occurrence: GB)
  Receive Date: 20210304
  Receipt Date: 20210304
  Transmission Date: 20210420
  Serious: Yes (Other)
  Sender: FDA-Public Use
  Company Number: GB-CIPLA LTD.-2021GB01646

PATIENT

DRUGS (9)
  1. FINASTERIDE. [Suspect]
     Active Substance: FINASTERIDE
     Indication: PROSTATOMEGALY
     Dosage: 5 MILLIGRAM, UNK
     Route: 048
     Dates: start: 20190823, end: 20200825
  2. NAPROXEN. [Concomitant]
     Active Substance: NAPROXEN
     Indication: ILL-DEFINED DISORDER
     Dosage: UNK
     Route: 065
  3. OMEPRAZOLE. [Concomitant]
     Active Substance: OMEPRAZOLE
     Indication: ILL-DEFINED DISORDER
     Dosage: UNK
     Route: 065
  4. SIMVASTATIN. [Concomitant]
     Active Substance: SIMVASTATIN
     Indication: ILL-DEFINED DISORDER
     Dosage: UNK
     Route: 065
  5. DUTASTERIDE. [Suspect]
     Active Substance: DUTASTERIDE
     Indication: PROSTATOMEGALY
     Dosage: 0.5 MILLIGRAM, UNK
     Route: 048
     Dates: start: 20200825
  6. CREON [Concomitant]
     Active Substance: PANCRELIPASE AMYLASE\PANCRELIPASE LIPASE\PANCRELIPASE PROTEASE
     Indication: ILL-DEFINED DISORDER
     Dosage: UNK
     Route: 065
  7. DOXAZOSIN [Concomitant]
     Active Substance: DOXAZOSIN MESYLATE
     Indication: ILL-DEFINED DISORDER
     Dosage: UNK
     Route: 065
  8. LISINOPRIL. [Concomitant]
     Active Substance: LISINOPRIL
     Indication: ILL-DEFINED DISORDER
     Dosage: UNK
     Route: 065
  9. ASPIRIN EC [Concomitant]
     Active Substance: ASPIRIN
     Indication: ILL-DEFINED DISORDER
     Dosage: UNK
     Route: 065

REACTIONS (1)
  - Phimosis [Not Recovered/Not Resolved]

NARRATIVE: CASE EVENT DATE: 20200101
